FAERS Safety Report 14172724 (Version 1)
Quarter: 2017Q4

REPORT INFORMATION
  Report Type: Spontaneous
  Country: US (occurrence: None)
  Receive Date: 20171108
  Receipt Date: 20171108
  Transmission Date: 20180321
  Serious: Yes (Disabling)
  Sender: FDA-Public Use
  Company Number: None

PATIENT
  Age: 70 Year
  Sex: Female
  Weight: 54.43 kg

DRUGS (1)
  1. CIPROFLOXACIN. [Suspect]
     Active Substance: CIPROFLOXACIN
     Indication: URINARY TRACT INFECTION
     Dosage: 2 PILLS PER DAY EVERY 12 HRS BY MOUTH
     Route: 048
     Dates: start: 20170910, end: 20171018

REACTIONS (4)
  - Arthralgia [None]
  - Musculoskeletal pain [None]
  - Swelling [None]
  - Pain in extremity [None]

NARRATIVE: CASE EVENT DATE: 20170911
